FAERS Safety Report 26058174 (Version 1)
Quarter: 2025Q4

REPORT INFORMATION
  Report Type: Report from Study
  Country: GB (occurrence: GB)
  Receive Date: 20251118
  Receipt Date: 20251118
  Transmission Date: 20260117
  Serious: Yes (Other)
  Sender: CELLTRION
  Company Number: GB-CELLTRION INC.-2025GB041370

PATIENT

DRUGS (1)
  1. INFLIXIMAB-DYYB [Suspect]
     Active Substance: INFLIXIMAB-DYYB
     Indication: Colitis ulcerative
     Dosage: REMSIMA 120 MG/1ML SOLUTION FOR INJECTION PRE-FILLED PENS INJECT ONE PRE-FILLED PEN EVERY TWO WEEKS
     Route: 058
     Dates: start: 202509

REACTIONS (7)
  - Cerebrovascular accident [Unknown]
  - Vascular dementia [Unknown]
  - Weight decreased [Unknown]
  - Iron deficiency [Unknown]
  - Oropharyngeal pain [Unknown]
  - Nasopharyngitis [Unknown]
  - Diarrhoea [Not Recovered/Not Resolved]
